APPROVED DRUG PRODUCT: DEFERASIROX
Active Ingredient: DEFERASIROX
Strength: 90MG
Dosage Form/Route: GRANULE;ORAL
Application: A216229 | Product #003 | TE Code: AB
Applicant: ANNORA PHARMA PRIVATE LTD
Approved: Mar 16, 2023 | RLD: No | RS: No | Type: RX